FAERS Safety Report 6944941-X (Version None)
Quarter: 2010Q3

REPORT INFORMATION
  Report Type: 
  Country: None (occurrence: None)
  Receive Date: 20100827
  Receipt Date: 20100823
  Transmission Date: 20110219
  Serious: Yes (Other)
  Sender: FDA-Public Use
  Company Number: US-JNJFOC-20100807958

PATIENT
  Age: 5 Year
  Sex: Female
  Weight: 18.14 kg

DRUGS (3)
  1. CHILDREN'S TYLENOL SUSPENSION [Suspect]
     Route: 048
  2. CHILDREN'S TYLENOL SUSPENSION [Suspect]
     Indication: PYREXIA
     Dosage: 160 MG 1-2 TIMES DAILY (AS NEEDED)
     Route: 048
  3. VITAMIN TAB [Concomitant]

REACTIONS (2)
  - HENOCH-SCHONLEIN PURPURA [None]
  - PRODUCT QUALITY ISSUE [None]
